FAERS Safety Report 4900539-6 (Version None)
Quarter: 2006Q1

REPORT INFORMATION
  Report Type: 
  Country: None (occurrence: None)
  Receive Date: 20060203
  Receipt Date: 20041004
  Transmission Date: 20060701
  Serious: Yes (Hospitalization)
  Sender: FDA-Public Use
  Company Number: US-MERCK-0412USA03172

PATIENT
  Age: 54 Year
  Sex: Male

DRUGS (2)
  1. VIOXX [Suspect]
     Indication: NEURALGIA
     Route: 048
  2. VIOXX [Suspect]
     Indication: GOUT
     Route: 048

REACTIONS (6)
  - CORONARY ARTERY OCCLUSION [None]
  - CORONARY ARTERY THROMBOSIS [None]
  - GASTROOESOPHAGEAL REFLUX DISEASE [None]
  - HEART INJURY [None]
  - HYPERLIPIDAEMIA [None]
  - MYOCARDIAL INFARCTION [None]
